FAERS Safety Report 24591478 (Version 1)
Quarter: 2024Q4

REPORT INFORMATION
  Report Type: Spontaneous
  Country: KR (occurrence: KR)
  Receive Date: 20241108
  Receipt Date: 20241108
  Transmission Date: 20250115
  Serious: Yes (Hospitalization, Other)
  Sender: SANOFI AVENTIS
  Company Number: KR-SA-2024SA320213

PATIENT
  Age: 63 Year
  Sex: Male

DRUGS (1)
  1. TOUJEO [Suspect]
     Active Substance: INSULIN GLARGINE
     Indication: Diabetes mellitus
     Dosage: UNK UNK, QD
     Route: 058

REACTIONS (5)
  - Cerebrovascular accident [Unknown]
  - Hemiplegia [Not Recovered/Not Resolved]
  - Carotid artery stent insertion [Recovered/Resolved]
  - Pain [Unknown]
  - Inappropriate schedule of product administration [Unknown]

NARRATIVE: CASE EVENT DATE: 20181101
